FAERS Safety Report 24968175 (Version 2)
Quarter: 2025Q1

REPORT INFORMATION
  Report Type: Spontaneous
  Country: CN (occurrence: CN)
  Receive Date: 20250214
  Receipt Date: 20250220
  Transmission Date: 20250408
  Serious: Yes (Hospitalization, Other)
  Sender: ALKEM
  Company Number: None

PATIENT
  Age: 68 Year
  Sex: Female

DRUGS (6)
  1. TACROLIMUS [Interacting]
     Active Substance: TACROLIMUS
     Indication: Prophylaxis against transplant rejection
     Dosage: 3 MILLIGRAM, BID
     Route: 048
  2. MYCOPHENOLATE MOFETIL [Suspect]
     Active Substance: MYCOPHENOLATE MOFETIL
     Indication: Prophylaxis against transplant rejection
     Dosage: 0.5 GRAM, BID
     Route: 048
  3. METHYLPREDNISOLONE [Suspect]
     Active Substance: METHYLPREDNISOLONE
     Indication: Prophylaxis against transplant rejection
     Dosage: 16 MILLIGRAM, QD
     Route: 048
  4. DALTEPARIN [Interacting]
     Active Substance: DALTEPARIN
     Indication: Thrombosis prophylaxis
     Dosage: 500 INTERNATIONAL UNIT, QD
     Route: 058
  5. NIRMATRELVIR [Interacting]
     Active Substance: NIRMATRELVIR
     Indication: COVID-19 pneumonia
     Dosage: 300 MILLIGRAM, BID
     Route: 065
  6. RITONAVIR [Interacting]
     Active Substance: RITONAVIR
     Indication: COVID-19 pneumonia
     Dosage: 100 MILLIGRAM, BID
     Route: 065

REACTIONS (8)
  - Shock haemorrhagic [Recovered/Resolved]
  - Renal haemorrhage [Recovered/Resolved]
  - Drug interaction [Unknown]
  - Immunosuppressant drug level increased [Recovered/Resolved]
  - Toxicity to various agents [Recovered/Resolved]
  - Renal transplant failure [Recovered/Resolved]
  - Coagulopathy [Recovered/Resolved]
  - COVID-19 pneumonia [Recovered/Resolved]
